FAERS Safety Report 12282331 (Version 3)
Quarter: 2016Q2

REPORT INFORMATION
  Report Type: Spontaneous
  Country: JP (occurrence: JP)
  Receive Date: 20160419
  Receipt Date: 20160502
  Transmission Date: 20160815
  Serious: Yes (Other)
  Sender: FDA-Public Use
  Company Number: JP-JNJFOC-20160416599

PATIENT
  Age: 64 Year
  Sex: Female

DRUGS (2)
  1. REMICADE [Suspect]
     Active Substance: INFLIXIMAB
     Indication: RHEUMATOID ARTHRITIS
     Dosage: 6 MG/WEEK
     Route: 042
     Dates: start: 2008
  2. METHOTREXATE [Suspect]
     Active Substance: METHOTREXATE
     Indication: RHEUMATOID ARTHRITIS
     Route: 048
     Dates: start: 2008

REACTIONS (2)
  - Lymphoproliferative disorder [Recovering/Resolving]
  - Rheumatoid arthritis [Unknown]

NARRATIVE: CASE EVENT DATE: 201012
